FAERS Safety Report 6434297-3 (Version None)
Quarter: 2009Q4

REPORT INFORMATION
  Report Type: 
  Country: None (occurrence: None)
  Receive Date: 20091110
  Receipt Date: 20091106
  Transmission Date: 20100525
  Serious: Yes (Life-Threatening, Hospitalization)
  Sender: FDA-Public Use
  Company Number: GB-ASTRAZENECA-2009SE24746

PATIENT
  Sex: Male

DRUGS (4)
  1. ATENOLOL [Suspect]
     Dates: start: 20090919
  2. CLOMIPRAMINE [Suspect]
     Dates: start: 20090919
  3. CLOZARIL [Suspect]
     Indication: SCHIZOPHRENIA
     Dates: start: 20090519
  4. CLOZARIL [Suspect]
     Dates: start: 20090919

REACTIONS (1)
  - OVERDOSE [None]
